FAERS Safety Report 11899100 (Version 1)
Quarter: 2016Q1

REPORT INFORMATION
  Report Type: Spontaneous
  Country: GB (occurrence: GB)
  Receive Date: 20160108
  Receipt Date: 20160108
  Transmission Date: 20160526
  Serious: Yes (Other)
  Sender: FDA-Public Use
  Company Number: GB-JNJFOC-20151223444

PATIENT
  Age: 63 Year
  Sex: Female

DRUGS (13)
  1. PARACETAMOL [Suspect]
     Active Substance: ACETAMINOPHEN
     Indication: PRODUCT USED FOR UNKNOWN INDICATION
     Route: 065
  2. VITAMIN D [Concomitant]
     Active Substance: CHOLECALCIFEROL
     Indication: VITAMIN D DEFICIENCY
     Dosage: 800.0 UNITS NOT REPORTED
     Route: 065
     Dates: start: 2011
  3. VITAMIN B12 [Concomitant]
     Active Substance: CYANOCOBALAMIN
     Dosage: DOSE 500 UNIT NOT SPECIFIED
     Route: 065
  4. VITAMIN D [Concomitant]
     Active Substance: CHOLECALCIFEROL
     Indication: VITAMIN D DEFICIENCY
     Dosage: DOSE 1400 UNITS NOT REPORTED
     Route: 065
     Dates: start: 2011
  5. VITAMIN B12 [Concomitant]
     Active Substance: CYANOCOBALAMIN
     Dosage: 125 UNITS NOT SPECIFIED
     Route: 065
     Dates: start: 2011
  6. LEVOTHYROXINE. [Concomitant]
     Active Substance: LEVOTHYROXINE
     Indication: HYPOTHYROIDISM
     Dosage: 100.0 UNITS UNSPECIFIED
     Route: 065
     Dates: start: 2002
  7. LIOTHYRONINE SODIUM. [Suspect]
     Active Substance: LIOTHYRONINE SODIUM
     Indication: HYPOTHYROIDISM
     Dosage: 1 DOSE (UNIT UNSPECIFIED)
     Route: 065
     Dates: start: 2007
  8. VITAMIN C [Concomitant]
     Active Substance: ASCORBIC ACID
     Indication: PRODUCT USED FOR UNKNOWN INDICATION
     Dosage: DOSE 500 (UNIT UNSPECIFIED)
     Route: 065
  9. IRON [Concomitant]
     Active Substance: IRON
     Indication: PRODUCT USED FOR UNKNOWN INDICATION
     Dosage: DOSE 25 (UNIT UNSPECIFIED)
     Route: 065
  10. PARACETAMOL [Suspect]
     Active Substance: ACETAMINOPHEN
     Route: 065
  11. LIOTHYRONINE SODIUM. [Suspect]
     Active Substance: LIOTHYRONINE SODIUM
     Indication: HYPOTHYROIDISM
     Route: 065
  12. LIOTHYRONINE SODIUM. [Suspect]
     Active Substance: LIOTHYRONINE SODIUM
     Indication: HYPOTHYROIDISM
     Dosage: 1 DOSE
     Route: 065
     Dates: start: 2002
  13. LEVOTHYROXINE. [Concomitant]
     Active Substance: LEVOTHYROXINE
     Indication: HYPOTHYROIDISM
     Dosage: DOSE 125  UNITS UNSPECIFIED
     Route: 065

REACTIONS (25)
  - Feeling abnormal [Recovered/Resolved]
  - Malaise [Not Recovered/Not Resolved]
  - Eye pain [Recovering/Resolving]
  - Reaction to drug excipients [Unknown]
  - Disturbance in attention [Unknown]
  - Middle insomnia [Unknown]
  - Hypersensitivity [Recovering/Resolving]
  - Memory impairment [Unknown]
  - Thyroid function test abnormal [Unknown]
  - Dyspnoea [Unknown]
  - Arthralgia [Unknown]
  - Dry eye [Recovering/Resolving]
  - Product quality issue [Unknown]
  - Hunger [Unknown]
  - Initial insomnia [Unknown]
  - Weight increased [Unknown]
  - Micturition urgency [Unknown]
  - Fatigue [Unknown]
  - Wheezing [Unknown]
  - Vision blurred [Unknown]
  - Visual acuity reduced [Unknown]
  - Drug ineffective [Unknown]
  - Headache [Unknown]
  - Malaise [Unknown]
  - Sleep disorder due to general medical condition, insomnia type [Unknown]
